FAERS Safety Report 9299229 (Version 1)
Quarter: 2013Q2

REPORT INFORMATION
  Report Type: Spontaneous
  Country: US (occurrence: US)
  Receive Date: 20130520
  Receipt Date: 20130520
  Transmission Date: 20140414
  Serious: No
  Sender: FDA-Public Use
  Company Number: US-009507513-1305USA004664

PATIENT
  Sex: Female

DRUGS (2)
  1. MIRALAX [Suspect]
     Indication: CONSTIPATION
     Dosage: 17 G, Q4H
     Route: 048
  2. MIRALAX [Suspect]
     Dosage: UNK UNK, BID
     Route: 048

REACTIONS (2)
  - Overdose [Unknown]
  - Incorrect drug administration rate [Unknown]
